FAERS Safety Report 25234499 (Version 1)
Quarter: 2025Q2

REPORT INFORMATION
  Report Type: Spontaneous
  Country: US (occurrence: US)
  Receive Date: 20250424
  Receipt Date: 20250424
  Transmission Date: 20250717
  Serious: Yes (Other)
  Sender: CHEPLAPHARM
  Company Number: US-CHEPLA-2025005064

PATIENT
  Age: 34 Year
  Sex: Male

DRUGS (1)
  1. QUETIAPINE [Suspect]
     Active Substance: QUETIAPINE
     Indication: Sleep disorder

REACTIONS (5)
  - Electrocardiogram ST segment elevation [Unknown]
  - Overdose [Unknown]
  - Dizziness [Unknown]
  - Fall [Unknown]
  - Off label use [Unknown]
